FAERS Safety Report 24003546 (Version 1)
Quarter: 2024Q2

REPORT INFORMATION
  Report Type: Spontaneous
  Country: US (occurrence: US)
  Receive Date: 20240624
  Receipt Date: 20240624
  Transmission Date: 20240715
  Serious: Yes (Hospitalization, Other)
  Sender: FDA-Public Use
  Company Number: US-SAREPTA THERAPEUTICS INC.-SRP2024-004735

PATIENT
  Age: 14 Year
  Sex: Male
  Weight: 72.56 kg

DRUGS (1)
  1. AMONDYS 45 [Suspect]
     Active Substance: CASIMERSEN
     Indication: Product used for unknown indication
     Dosage: 2050 MILLIGRAM, WEEKLY
     Route: 042
     Dates: end: 20230606

REACTIONS (6)
  - Blood urine present [Unknown]
  - Nephrolithiasis [Unknown]
  - Pneumonia [Unknown]
  - Asthenia [Unknown]
  - Pain [Unknown]
  - Pyrexia [Unknown]

NARRATIVE: CASE EVENT DATE: 20240601
